FAERS Safety Report 8241278-6 (Version None)
Quarter: 2012Q1

REPORT INFORMATION
  Report Type: 
  Country: None (occurrence: None)
  Receive Date: 20120309
  Receipt Date: 20110421
  Transmission Date: 20120608
  Serious: Yes (Other)
  Sender: FDA-Public Use
  Company Number: PHHY2011US22449

PATIENT
  Age: 34 Year
  Sex: Male
  Weight: 140.6 kg

DRUGS (12)
  1. METFORMIN HCL [Concomitant]
  2. GLUCOPHAGE [Concomitant]
  3. TRAMADOL HCL [Concomitant]
  4. LISINOPRIL [Concomitant]
  5. EXTAVIA [Suspect]
     Indication: MULTIPLE SCLEROSIS
     Dosage: 0.062 MG, QOD, SUBCUTANEOUS
     Route: 058
  6. TRAZODONE HCL [Concomitant]
  7. ATIVAN [Concomitant]
  8. ZESTRIL [Concomitant]
  9. ULTRAM [Concomitant]
  10. LYRICA [Concomitant]
  11. POTASSIUM CHLORIDE [Concomitant]
  12. MOBIC [Concomitant]

REACTIONS (9)
  - ASPARTATE AMINOTRANSFERASE INCREASED [None]
  - FEELING ABNORMAL [None]
  - BLOOD THYROID STIMULATING HORMONE INCREASED [None]
  - HEADACHE [None]
  - INFLUENZA LIKE ILLNESS [None]
  - ABDOMINAL DISCOMFORT [None]
  - ASTHENIA [None]
  - FATIGUE [None]
  - ALANINE AMINOTRANSFERASE INCREASED [None]
